FAERS Safety Report 22165566 (Version 1)
Quarter: 2023Q2

REPORT INFORMATION
  Report Type: Report from Study
  Country: GB (occurrence: GB)
  Receive Date: 20230403
  Receipt Date: 20230403
  Transmission Date: 20230722
  Serious: Yes (Other)
  Sender: FDA-Public Use
  Company Number: GB-SAMSUNG BIOEPIS-SB-2023-08566

PATIENT
  Sex: Female

DRUGS (1)
  1. IMRALDI [Suspect]
     Active Substance: ADALIMUMAB
     Indication: Behcet^s syndrome
     Dosage: 40MG/ 0.8ML;
     Route: 058
     Dates: start: 20220412

REACTIONS (3)
  - Lower respiratory tract infection [Unknown]
  - Pneumonia [Unknown]
  - Product use in unapproved indication [Unknown]
